FAERS Safety Report 4945672-8 (Version None)
Quarter: 2006Q1

REPORT INFORMATION
  Report Type: 
  Country: None (occurrence: None)
  Receive Date: 20060117
  Receipt Date: 20050825
  Transmission Date: 20060701
  Serious: Yes (Hospitalization)
  Sender: FDA-Public Use
  Company Number: A03200502679

PATIENT
  Age: 83 Year
  Sex: Female
  Weight: 50.79 kg

DRUGS (4)
  1. PLAVIX [Suspect]
     Indication: ATRIAL FIBRILLATION
     Dosage: 75 MG QD ORAL
     Route: 048
     Dates: start: 20030917, end: 20040301
  2. PLAVIX [Suspect]
     Indication: CORONARY ARTERY OCCLUSION
     Dosage: 75 MG QD ORAL
     Route: 048
     Dates: start: 20030917, end: 20040301
  3. OLMESARTAN [Concomitant]
  4. METOPROLOL SUCCINATE [Concomitant]

REACTIONS (2)
  - CORONARY ARTERY OCCLUSION [None]
  - RASH PAPULAR [None]
